FAERS Safety Report 9929680 (Version 1)
Quarter: 2014Q1

REPORT INFORMATION
  Report Type: Report from Study
  Country: US (occurrence: US)
  Receive Date: 20140227
  Receipt Date: 20140227
  Transmission Date: 20141002
  Serious: Yes (Hospitalization, Other)
  Sender: FDA-Public Use
  Company Number: US-PFIZER INC-2014056144

PATIENT
  Age: 50 Year
  Sex: Female

DRUGS (4)
  1. SOLU-MEDROL [Suspect]
     Indication: MULTIPLE SCLEROSIS RELAPSE
     Dosage: UNK
  2. SOLU-MEDROL [Suspect]
     Indication: MULTIPLE SCLEROSIS
  3. AMPYRA [Suspect]
     Dosage: 20 MG, 1X/DAY
     Dates: start: 201208
  4. AMPYRA [Suspect]
     Dosage: 10 MG, 1X/DAY

REACTIONS (9)
  - International normalised ratio increased [Unknown]
  - Multiple sclerosis relapse [Unknown]
  - Urinary tract infection [Unknown]
  - Hallucination [Unknown]
  - Cognitive disorder [Unknown]
  - Memory impairment [Unknown]
  - Muscle spasms [Unknown]
  - Back pain [Unknown]
  - Inappropriate schedule of drug administration [Unknown]
